FAERS Safety Report 6248608-5 (Version None)
Quarter: 2009Q2

REPORT INFORMATION
  Report Type: 
  Country: None (occurrence: None)
  Receive Date: 20090624
  Receipt Date: 20090624
  Transmission Date: 20091009
  Serious: No
  Sender: FDA-Public Use
  Company Number: None

PATIENT
  Age: 59 Year
  Sex: Male
  Weight: 64.9 kg

DRUGS (22)
  1. TRIMETHOPRIM + SULFAMETHOXAZOLE [Suspect]
     Indication: PNEUMOCYSTIS JIROVECI PNEUMONIA
     Dosage: 160 MG/80 MG 2 TABS  PO Q 6 HOURS
     Route: 048
     Dates: start: 20090314, end: 20090318
  2. . [Concomitant]
  3. AZITHROMYCIN [Concomitant]
  4. METRONICLAZOLE [Concomitant]
  5. VALACYCLOVIR [Concomitant]
  6. ENTECAVIR [Concomitant]
  7. TENOFOVIR [Concomitant]
  8. DOCUSATE [Concomitant]
  9. SENNA [Concomitant]
  10. HEPARIN [Concomitant]
  11. ASPART [Concomitant]
  12. INSULIN [Concomitant]
  13. LANSOPRAZOLE [Concomitant]
  14. METHYLPREDNISOLONE [Concomitant]
  15. NIACIN [Suspect]
  16. ROSUVASTATIN CALCIUM [Concomitant]
  17. OCULAR LUBRICANT [Concomitant]
  18. PREDNISONE [Concomitant]
  19. METOPROLOL TARTRATE [Concomitant]
  20. NYSTATIN [Concomitant]
  21. ALBUTEROL [Concomitant]
  22. IPRATROPIUM BROMIDE [Concomitant]

REACTIONS (2)
  - BLOOD POTASSIUM INCREASED [None]
  - ELECTROCARDIOGRAM T WAVE PEAKED [None]
